FAERS Safety Report 4433554-X (Version None)
Quarter: 2004Q3

REPORT INFORMATION
  Report Type: 
  Country: None (occurrence: None)
  Receive Date: 20040824
  Receipt Date: 20420809
  Transmission Date: 20050211
  Serious: Yes (Hospitalization)
  Sender: FDA-Public Use
  Company Number: 2004-FF-00477FF

PATIENT
  Age: 58 Year
  Sex: Male

DRUGS (5)
  1. VIRAMUNE [Suspect]
     Indication: HIV INFECTION
     Dosage: 400 MG (200 MG), PO
     Route: 048
  2. KALETRA [Suspect]
     Indication: HIV INFECTION
     Dosage: (6 IN 1 D), PO
     Route: 048
  3. VIREAD [Suspect]
     Indication: HIV INFECTION
     Dosage: 245 MG (MG), PO
     Route: 048
  4. VALACYCLOVIR HCL [Concomitant]
  5. .. [Suspect]

REACTIONS (1)
  - OSTEONECROSIS [None]
